APPROVED DRUG PRODUCT: SILDENAFIL CITRATE
Active Ingredient: SILDENAFIL CITRATE
Strength: EQ 50MG BASE
Dosage Form/Route: TABLET;ORAL
Application: A077342 | Product #002 | TE Code: AB
Applicant: TEVA PHARMACEUTICALS USA INC
Approved: Mar 9, 2016 | RLD: No | RS: No | Type: RX